FAERS Safety Report 8535880-1 (Version None)
Quarter: 2012Q3

REPORT INFORMATION
  Report Type: 
  Country: None (occurrence: None)
  Receive Date: 20120725
  Receipt Date: 20120718
  Transmission Date: 20120928
  Serious: Yes (Hospitalization, Other)
  Sender: FDA-Public Use
  Company Number: PHHY2012FR062402

PATIENT
  Age: 94 Year
  Sex: Male
  Weight: 43 kg

DRUGS (7)
  1. BETAHISTINE HYDROCHLORIDE [Concomitant]
  2. VITAMIN D [Suspect]
     Dosage: 1 DF, DAILY
     Route: 048
     Dates: end: 20120516
  3. POTASSIUM CHLORIDE [Concomitant]
  4. LEVOTHYROXINE SODIUM [Concomitant]
     Dosage: 25 UG, UNK
  5. STALEVO 100 [Suspect]
     Indication: PARKINSON'S DISEASE
     Dosage: 1 DF, BID
     Route: 048
     Dates: end: 20120516
  6. PREVISCAN [Concomitant]
  7. LEVOTHYROXINE SODIUM [Concomitant]
     Dosage: 50 UG, UNK

REACTIONS (6)
  - DIARRHOEA [None]
  - DEHYDRATION [None]
  - GENERAL PHYSICAL HEALTH DETERIORATION [None]
  - CONFUSIONAL STATE [None]
  - DECREASED APPETITE [None]
  - OVERDOSE [None]
